FAERS Safety Report 10074195 (Version 1)
Quarter: 2014Q2

REPORT INFORMATION
  Report Type: Spontaneous
  Country: CZ (occurrence: CZ)
  Receive Date: 20140411
  Receipt Date: 20140411
  Transmission Date: 20141212
  Serious: Yes (Hospitalization)
  Sender: FDA-Public Use
  Company Number: CZ-ABBVIE-14P-217-1225450-00

PATIENT
  Age: 64 Year
  Sex: Female

DRUGS (12)
  1. LIPANTHYL [Suspect]
     Indication: HYPERTRIGLYCERIDAEMIA
     Route: 048
     Dates: start: 1992, end: 20050929
  2. ZANOCIN [Concomitant]
     Indication: URINARY TRACT INFECTION
     Dates: start: 20050916, end: 20050923
  3. LOMIR [Concomitant]
     Indication: PRODUCT USED FOR UNKNOWN INDICATION
  4. ALL OTHER THERAPEUTIC PRODUCTS [Concomitant]
     Indication: PRODUCT USED FOR UNKNOWN INDICATION
  5. DIAPREL MR [Concomitant]
     Indication: PRODUCT USED FOR UNKNOWN INDICATION
  6. DIGOXIN [Concomitant]
     Indication: PRODUCT USED FOR UNKNOWN INDICATION
  7. WARFARIN [Concomitant]
     Indication: PRODUCT USED FOR UNKNOWN INDICATION
     Dosage: WARFARIN 5 AND 3 MG
  8. VEROSPIRON [Concomitant]
     Indication: PRODUCT USED FOR UNKNOWN INDICATION
  9. JODTHYROX [Concomitant]
     Indication: PRODUCT USED FOR UNKNOWN INDICATION
  10. FURON [Concomitant]
     Indication: PRODUCT USED FOR UNKNOWN INDICATION
  11. BETALOC [Concomitant]
     Indication: PRODUCT USED FOR UNKNOWN INDICATION
  12. TANATRIL [Concomitant]
     Indication: PRODUCT USED FOR UNKNOWN INDICATION

REACTIONS (4)
  - Dyspnoea [Recovered/Resolved]
  - Oedema peripheral [Recovered/Resolved]
  - Myalgia [Recovered/Resolved]
  - Fatigue [Recovered/Resolved]
